FAERS Safety Report 26098104 (Version 1)
Quarter: 2025Q4

REPORT INFORMATION
  Report Type: Report from Study
  Country: US (occurrence: US)
  Receive Date: 20251127
  Receipt Date: 20251127
  Transmission Date: 20260119
  Serious: Yes (Death)
  Sender: SANOFI AVENTIS
  Company Number: US-DialogSolutions-SAAVPROD-PI846101-C1

PATIENT

DRUGS (2)
  1. DOCETAXEL [Suspect]
     Active Substance: DOCETAXEL
     Indication: Non-small cell lung cancer
     Dosage: 35 MG/M2, QCY (ON DAYS 1, 8, AND 15 OF A 28-DAY CYCLE)
  2. VINORELBINE [Suspect]
     Active Substance: VINORELBINE TARTRATE
     Indication: Non-small cell lung cancer
     Dosage: 25 MG/M2, QCY (ON DAYS 1 AND 8 OF A 21-DAY CYCLE)
     Route: 042

REACTIONS (1)
  - Pneumonia [Fatal]
